APPROVED DRUG PRODUCT: NEOBIOTIC
Active Ingredient: NEOMYCIN SULFATE
Strength: EQ 350MG BASE
Dosage Form/Route: TABLET;ORAL
Application: A060475 | Product #001
Applicant: PFIZER LABORATORIES DIV PFIZER INC
Approved: Approved Prior to Jan 1, 1982 | RLD: No | RS: No | Type: DISCN